FAERS Safety Report 6204559-3 (Version None)
Quarter: 2009Q2

REPORT INFORMATION
  Report Type: 
  Country: None (occurrence: None)
  Receive Date: 20090527
  Receipt Date: 20090514
  Transmission Date: 20091009
  Serious: Yes (Hospitalization)
  Sender: FDA-Public Use
  Company Number: US-PFIZER INC-2009213311

PATIENT
  Sex: Female
  Weight: 117 kg

DRUGS (11)
  1. DEPO-MEDROL [Suspect]
     Indication: BACK PAIN
     Dosage: UNK
     Route: 008
     Dates: start: 20081204
  2. LIDOCAINE HYDROCHLORIDE [Suspect]
     Indication: BACK PAIN
     Dosage: UNK
     Route: 008
     Dates: start: 20081204
  3. SALINE MIXTURE [Suspect]
     Indication: BACK PAIN
     Dosage: UNK
     Route: 008
     Dates: start: 20081204
  4. POTASSIUM [Concomitant]
     Indication: PROPHYLAXIS
     Dosage: 40 MEQ, AS NEEDED
     Route: 048
     Dates: start: 20081122
  5. IMITREX [Concomitant]
     Indication: MIGRAINE
     Dosage: UNK
     Route: 048
     Dates: start: 19990101
  6. ACIPHEX [Concomitant]
     Indication: GASTROOESOPHAGEAL REFLUX DISEASE
     Dosage: 20 MG, AS NEEDED
     Route: 048
     Dates: start: 20080701
  7. LASIX [Concomitant]
     Indication: HYPERTENSION
     Dosage: 40 MG, AS NEEDED
     Route: 048
     Dates: start: 20080301
  8. ABILIFY [Concomitant]
     Indication: BIPOLAR DISORDER
     Dosage: 30 MG, AS NEEDED
     Route: 048
     Dates: start: 20080301
  9. LOTENSIN [Concomitant]
     Indication: HYPERTENSION
     Dosage: 20 MG, AS NEEDED
     Route: 048
     Dates: start: 20080601
  10. LUNESTA [Concomitant]
     Indication: INSOMNIA
     Dosage: UNK
     Route: 048
     Dates: start: 20070901
  11. DITROPAN XL [Concomitant]
     Indication: INCONTINENCE
     Dosage: 10 MG, AS NEEDED
     Route: 048
     Dates: start: 20080401

REACTIONS (1)
  - PYREXIA [None]
